FAERS Safety Report 11496178 (Version 1)
Quarter: 2015Q3

REPORT INFORMATION
  Report Type: Spontaneous
  Country: GB (occurrence: GB)
  Receive Date: 20150911
  Receipt Date: 20150911
  Transmission Date: 20151125
  Serious: Yes (Death, Hospitalization)
  Sender: FDA-Public Use
  Company Number: GB-JNJFOC-20150905272

PATIENT
  Age: 75 Year
  Sex: Male

DRUGS (1)
  1. IBRUTINIB [Suspect]
     Active Substance: IBRUTINIB
     Indication: CHRONIC LYMPHOCYTIC LEUKAEMIA
     Route: 048
     Dates: start: 201504

REACTIONS (10)
  - Haemolytic anaemia [Unknown]
  - Splenomegaly [Unknown]
  - Confusional state [Unknown]
  - Cerebral haemorrhage [Unknown]
  - White blood cell count increased [Unknown]
  - Haemoptysis [Unknown]
  - Chronic lymphocytic leukaemia [Fatal]
  - Urinary tract infection [Unknown]
  - Epistaxis [Unknown]
  - Hypercalcaemia [Unknown]

NARRATIVE: CASE EVENT DATE: 201508
